FAERS Safety Report 8030796-1 (Version None)
Quarter: 2012Q1

REPORT INFORMATION
  Report Type: 
  Country: None (occurrence: None)
  Receive Date: 20120109
  Receipt Date: 20120104
  Transmission Date: 20120608
  Serious: Yes (Hospitalization)
  Sender: FDA-Public Use
  Company Number: PHHO2010JP05096

PATIENT
  Sex: Male
  Weight: 59 kg

DRUGS (16)
  1. TASIGNA [Suspect]
     Indication: CHRONIC MYELOID LEUKAEMIA
     Dosage: 600 MG, QD
     Route: 048
     Dates: start: 20080410, end: 20080708
  2. TASIGNA [Suspect]
     Dosage: 600 MG, QD
     Dates: start: 20110209
  3. GLYBURIDE [Concomitant]
     Indication: DIABETES MELLITUS
     Dosage: 1.25 MG, UNK
     Route: 048
     Dates: start: 20090909
  4. TASIGNA [Suspect]
     Dosage: 600 MG, QD
     Dates: start: 20081029, end: 20110206
  5. OMEPRAZOLE [Concomitant]
     Indication: GASTRITIS PROPHYLAXIS
     Dosage: 10 MG, UNK
     Route: 048
     Dates: start: 20080502
  6. KETOPROFEN [Concomitant]
     Indication: BACK PAIN
     Dosage: UNK
     Route: 062
     Dates: start: 20080405
  7. TASIGNA [Suspect]
     Dosage: NO TREATMENT RECEIVED
     Dates: start: 20080709, end: 20080729
  8. TASIGNA [Suspect]
     Dosage: NO TREATMENT RECEIVED
     Dates: start: 20110207, end: 20110208
  9. BASEN [Concomitant]
     Indication: DIABETES MELLITUS
     Dosage: 0.6 MG, UNK
     Route: 048
     Dates: start: 20091105
  10. PRAVASTATIN SODIUM [Concomitant]
     Indication: HYPERLIPIDAEMIA
     Dosage: 10 MG, UNK
     Route: 048
     Dates: start: 20070829
  11. SENNOSIDE [Concomitant]
     Indication: CONSTIPATION
     Dosage: 24 MG, UNK
     Route: 048
     Dates: start: 20080502
  12. ARTZ [Concomitant]
     Indication: ARTHRALGIA
     Dosage: UNK
     Route: 054
     Dates: start: 20080516
  13. ALOSENN [Concomitant]
     Indication: CONSTIPATION
     Dosage: 1 G, UNK
     Route: 048
  14. TAMSULOSIN HYDROCHLORIDE [Concomitant]
     Indication: BENIGN PROSTATIC HYPERPLASIA
     Dosage: 0.2 MG, UNK
     Route: 048
     Dates: start: 20101025
  15. TASIGNA [Suspect]
     Dosage: 400 MG, QD
     Dates: start: 20080730, end: 20081028
  16. MAGNESIUM SULFATE [Concomitant]
     Indication: CONSTIPATION
     Dosage: 990 MG, UNK
     Route: 048
     Dates: start: 20050119

REACTIONS (8)
  - ARTERIAL OCCLUSIVE DISEASE [None]
  - ARTERIAL THROMBOSIS LIMB [None]
  - HYPOAESTHESIA [None]
  - PAIN IN EXTREMITY [None]
  - BACK PAIN [None]
  - WOUND [None]
  - AORTIC CALCIFICATION [None]
  - PERIPHERAL ARTERIAL OCCLUSIVE DISEASE [None]
